FAERS Safety Report 21461691 (Version 2)
Quarter: 2024Q4

REPORT INFORMATION
  Report Type: Report from Study
  Country: US (occurrence: US)
  Receive Date: 20221015
  Receipt Date: 20241225
  Transmission Date: 20250115
  Serious: No
  Sender: ABBVIE
  Company Number: US-ABBVIE-4142757

PATIENT
  Age: 40 Year
  Sex: Female

DRUGS (2)
  1. ORIAHNN [Suspect]
     Active Substance: ELAGOLIX SODIUM\ESTRADIOL\NORETHINDRONE
     Indication: Product used for unknown indication
     Dosage: 300MG
     Route: 048
     Dates: start: 20220911
  2. ORIAHNN [Suspect]
     Active Substance: ELAGOLIX SODIUM\ESTRADIOL\NORETHINDRONE
     Indication: Product used for unknown indication
     Dosage: 300 MG
     Route: 048
     Dates: start: 20220911

REACTIONS (3)
  - Menstruation irregular [Unknown]
  - Fatigue [Unknown]
  - Headache [Unknown]
